FAERS Safety Report 9684222 (Version 2)
Quarter: 2013Q4

REPORT INFORMATION
  Report Type: Spontaneous
  Country: US (occurrence: US)
  Receive Date: 20131112
  Receipt Date: 20131115
  Transmission Date: 20140711
  Serious: Yes (Hospitalization, Other)
  Sender: FDA-Public Use
  Company Number: US-PFIZER INC-2013318054

PATIENT
  Sex: Female
  Weight: 133.78 kg

DRUGS (4)
  1. LISINOPRIL [Suspect]
     Dosage: UNK
  2. DOXYCYCLINE CALCIUM [Suspect]
     Dosage: UNK
  3. ELIQUIS [Suspect]
     Dosage: UNK
  4. VICTOZA [Suspect]
     Dosage: UNK

REACTIONS (2)
  - Drug hypersensitivity [Unknown]
  - Renal failure acute [Unknown]
